FAERS Safety Report 5008922-8 (Version None)
Quarter: 2006Q2

REPORT INFORMATION
  Report Type: 
  Country: None (occurrence: None)
  Receive Date: 20060518
  Receipt Date: 20060517
  Transmission Date: 20061013
  Serious: Yes (Hospitalization, Other)
  Sender: FDA-Public Use
  Company Number: 06C161

PATIENT
  Age: 74 Year
  Sex: Male
  Weight: 99.7913 kg

DRUGS (1)
  1. CLOBETASOL PROPIONATE [Suspect]
     Indication: LICHEN SCLEROSUS
     Dosage: 1 TIME A DAY
     Dates: start: 20060201

REACTIONS (3)
  - CONDITION AGGRAVATED [None]
  - PENIS DISORDER [None]
  - SKIN INFECTION [None]
